FAERS Safety Report 4604750-3 (Version None)
Quarter: 2005Q2

REPORT INFORMATION
  Report Type: 
  Country: None (occurrence: None)
  Receive Date: 20050217
  Receipt Date: 20041101
  Transmission Date: 20051028
  Serious: No
  Sender: FDA-Public Use
  Company Number: S04-USA-07181-01

PATIENT
  Age: 95 Year
  Sex: Female

DRUGS (6)
  1. NAMENDA [Suspect]
     Indication: AMNESIA
     Dosage: 15 MG QD PO
     Route: 048
     Dates: start: 20041027
  2. NAMENDA [Suspect]
     Indication: AMNESIA
     Dosage: 5 MG QD PO
     Route: 048
     Dates: start: 20041013, end: 20041019
  3. NAMENDA [Suspect]
     Indication: AMNESIA
     Dosage: 10 MG QD PO
     Route: 048
     Dates: start: 20041020, end: 20041026
  4. EXELON [Concomitant]
  5. ANTIHYPERTENSIVE [Concomitant]
  6. UNKNOWN HEART MEDICATIONS (NOS) [Concomitant]

REACTIONS (1)
  - CONFUSIONAL STATE [None]
